FAERS Safety Report 7973735-1 (Version None)
Quarter: 2011Q4

REPORT INFORMATION
  Report Type: 
  Country: None (occurrence: None)
  Receive Date: 20111213
  Receipt Date: 20111213
  Transmission Date: 20120403
  Serious: Yes (Hospitalization)
  Sender: FDA-Public Use
  Company Number: None

PATIENT
  Age: 42 Year
  Sex: Female

DRUGS (3)
  1. RIBAVIRIN [Concomitant]
     Route: 048
  2. PEGASYS [Suspect]
     Indication: HEPATITIS C
     Dosage: 180
     Route: 058
     Dates: start: 20110916, end: 20111205
  3. INCIVEK [Concomitant]
     Dosage: 750MG
     Route: 048
     Dates: start: 20110916, end: 20111205

REACTIONS (2)
  - ANAPHYLACTIC REACTION [None]
  - WHITE BLOOD CELL COUNT DECREASED [None]
